FAERS Safety Report 19641779 (Version 2)
Quarter: 2021Q3

REPORT INFORMATION
  Report Type: Spontaneous
  Country: US (occurrence: US)
  Receive Date: 20210730
  Receipt Date: 20210901
  Transmission Date: 20211014
  Serious: No
  Sender: FDA-Public Use
  Company Number: US-ASTRAZENECA-2021A582171

PATIENT
  Age: 914 Month

DRUGS (1)
  1. BREZTRI [Suspect]
     Active Substance: BUDESONIDE\FORMOTEROL\GLYCOPYRRONIUM
     Indication: LUNG LOBECTOMY
     Dosage: 160/7.2/5.0 MCG, USES ONE PUFF THREE TIMES A DAY ALTHOUGH IT WAS PRESCRIBED FOR TWICE A DAY BY HCP
     Route: 055
     Dates: start: 202103

REACTIONS (5)
  - Incorrect dose administered [Unknown]
  - Device issue [Unknown]
  - Ill-defined disorder [Unknown]
  - Device use issue [Unknown]
  - Device malfunction [Unknown]

NARRATIVE: CASE EVENT DATE: 202103
